FAERS Safety Report 11831034 (Version 1)
Quarter: 2015Q4

REPORT INFORMATION
  Report Type: Report from Study
  Country: BR (occurrence: BR)
  Receive Date: 20151214
  Receipt Date: 20151214
  Transmission Date: 20160305
  Serious: Yes (Hospitalization, Other)
  Sender: FDA-Public Use
  Company Number: PHHY2015BR162920

PATIENT
  Sex: Female
  Weight: 57 kg

DRUGS (2)
  1. DIOVAN [Suspect]
     Active Substance: VALSARTAN
     Indication: HYPERTENSION
     Dosage: 1 DF(80/12.5 MG), QD (IN MORNING)
     Route: 048
  2. DIOVAN [Suspect]
     Active Substance: VALSARTAN
     Dosage: 1 DF (160/12.5 MG), QD
     Route: 065

REACTIONS (4)
  - Visual impairment [Unknown]
  - Headache [Unknown]
  - Blood pressure increased [Unknown]
  - Cardiac disorder [Unknown]
